FAERS Safety Report 5651353-8 (Version None)
Quarter: 2008Q1

REPORT INFORMATION
  Report Type: 
  Country: None (occurrence: None)
  Receive Date: 20080131
  Receipt Date: 20071207
  Transmission Date: 20080703
  Serious: No
  Sender: FDA-Public Use
  Company Number: US200712001936

PATIENT
  Sex: Male

DRUGS (1)
  1. BYETTA [Suspect]

REACTIONS (2)
  - HAEMATOCHEZIA [None]
  - WEIGHT DECREASED [None]
